FAERS Safety Report 10643588 (Version 3)
Quarter: 2016Q3

REPORT INFORMATION
  Report Type: Other
  Country: TR (occurrence: TR)
  Receive Date: 20141210
  Receipt Date: 20160907
  Transmission Date: 20161109
  Serious: Yes (Death, Hospitalization)
  Sender: FDA-Public Use
  Company Number: TR-UNITED THERAPEUTICS-UNT-2014-011938

PATIENT
  Age: 50 Year
  Sex: Male
  Weight: 89 kg

DRUGS (3)
  1. BOSENTAN. [Concomitant]
     Active Substance: BOSENTAN
     Indication: PRODUCT USED FOR UNKNOWN INDICATION
  2. REMODULIN [Suspect]
     Active Substance: TREPROSTINIL
     Indication: PULMONARY ARTERIAL HYPERTENSION
     Dosage: 0.028 ML/H
     Route: 058
     Dates: start: 201301, end: 20141125
  3. SILDENAFIL. [Concomitant]
     Active Substance: SILDENAFIL
     Indication: PRODUCT USED FOR UNKNOWN INDICATION

REACTIONS (6)
  - Cardiogenic shock [Fatal]
  - Cardiac failure [Fatal]
  - Urinary retention [Fatal]
  - Oedema [Fatal]
  - Cardiac arrest [Fatal]
  - Respiratory distress [Fatal]

NARRATIVE: CASE EVENT DATE: 2014
